FAERS Safety Report 10362375 (Version 1)
Quarter: 2014Q1

REPORT INFORMATION
  Report Type: Spontaneous
  Country: US (occurrence: None)
  Receive Date: 20140306
  Receipt Date: 20140306
  Transmission Date: 20141002
  Serious: Yes (Hospitalization, Other)
  Sender: FDA-Public Use
  Company Number: 163-21880-13060989

PATIENT
  Age: 84 Year
  Sex: Female
  Weight: 64.41 kg

DRUGS (1)
  1. REVLIMID (LENALIDOMIDE) (10 MILLIGRAM, CAPSULES) [Suspect]
     Indication: PLASMA CELL MYELOMA
     Dosage: 10 MG , 1 IN 1 D, PO  10/ 2010 - UNKNOWN THERAPY DATES
     Route: 048
     Dates: start: 201010

REACTIONS (1)
  - Streptococcal infection [None]
